FAERS Safety Report 21382654 (Version 7)
Quarter: 2023Q1

REPORT INFORMATION
  Report Type: Report from Study
  Country: BE (occurrence: None)
  Receive Date: 20220927
  Receipt Date: 20230327
  Transmission Date: 20230417
  Serious: Yes (Hospitalization)
  Sender: FDA-Public Use
  Company Number: BE-ROCHE-3112289

PATIENT
  Age: 46 Year
  Sex: Male
  Weight: 120 kg

DRUGS (83)
  1. GLOFITAMAB [Suspect]
     Active Substance: GLOFITAMAB
     Indication: Diffuse large B-cell lymphoma
     Dosage: ON 10/MAY/2022, HE RECEIVED MOST RECENT DOSE 30 MG OF STUDY DRUG PRIOR TO AE.?ON 30/AUG/2022, HE REC
     Route: 042
     Dates: start: 20220419
  2. ATEZOLIZUMAB [Suspect]
     Active Substance: ATEZOLIZUMAB
     Indication: Diffuse large B-cell lymphoma
     Dosage: ON 10/MAY/2022, HE RECEIVED MOST RECENT DOSE 1200 MG OF STUDY DRUG PRIOR TO AE/SAE.?TOTAL VOLUME PRI
     Route: 042
     Dates: start: 20220510
  3. OBINUTUZUMAB [Suspect]
     Active Substance: OBINUTUZUMAB
     Indication: Diffuse large B-cell lymphoma
     Dosage: ON 12/APR/2022, HE RECEIVED MOST RECENT DOSE 1000 MG OF STUDY DRUG PRIOR TO AE.?TOTAL VOLUME PRIOR A
     Route: 042
     Dates: start: 20220412
  4. ZIRCONIUM ZR-89-DESFERRIOXAMINE-IAB22M2C [Suspect]
     Active Substance: ZIRCONIUM ZR-89-DESFERRIOXAMINE-IAB22M2C
     Indication: Diffuse large B-cell lymphoma
     Dosage: ON 21/APR/2022, HE RECEIVED MOST RECENT DOSE OF STUDY DRUG PRIOR TO AE.?TOTAL VOLUME PRIOR AE/SAE 6.
     Route: 042
     Dates: start: 20220407
  5. ACETAMINOPHEN [Concomitant]
     Active Substance: ACETAMINOPHEN
     Indication: Cytokine release syndrome
     Dates: start: 20220420, end: 20220421
  6. ACETAMINOPHEN [Concomitant]
     Active Substance: ACETAMINOPHEN
     Indication: COVID-19 pneumonia
     Route: 048
     Dates: start: 20220426, end: 20220426
  7. ACETAMINOPHEN [Concomitant]
     Active Substance: ACETAMINOPHEN
     Route: 048
     Dates: start: 20220510, end: 20220510
  8. ACETAMINOPHEN [Concomitant]
     Active Substance: ACETAMINOPHEN
     Route: 048
     Dates: start: 20220601, end: 20220601
  9. ACETAMINOPHEN [Concomitant]
     Active Substance: ACETAMINOPHEN
     Route: 048
     Dates: start: 20220419, end: 20220419
  10. ACETAMINOPHEN [Concomitant]
     Active Substance: ACETAMINOPHEN
     Route: 048
     Dates: start: 20220712, end: 20220712
  11. ACETAMINOPHEN [Concomitant]
     Active Substance: ACETAMINOPHEN
     Route: 048
     Dates: start: 20220802, end: 20220802
  12. ACETAMINOPHEN [Concomitant]
     Active Substance: ACETAMINOPHEN
     Route: 048
     Dates: start: 20220830, end: 20220830
  13. ACETAMINOPHEN [Concomitant]
     Active Substance: ACETAMINOPHEN
     Dates: start: 20221108, end: 20221116
  14. IBUPROFEN [Concomitant]
     Active Substance: IBUPROFEN
     Indication: Arthritis
     Dates: start: 20220519
  15. IBUPROFEN [Concomitant]
     Active Substance: IBUPROFEN
     Indication: Pyrexia
     Dates: start: 20220524, end: 20220524
  16. IBUPROFEN [Concomitant]
     Active Substance: IBUPROFEN
     Indication: Nasopharyngitis
     Dates: start: 20220623, end: 20220623
  17. SCHERIPROCT (BELGIUM) [Concomitant]
     Indication: Haemorrhoids
     Dates: start: 20220530
  18. AUGMENTIN [Concomitant]
     Active Substance: AMOXICILLIN\CLAVULANATE POTASSIUM
     Indication: Pyrexia
     Dates: start: 20220524, end: 20220525
  19. AUGMENTIN [Concomitant]
     Active Substance: AMOXICILLIN\CLAVULANATE POTASSIUM
     Indication: Superinfection bacterial
     Dates: start: 20220420, end: 20220422
  20. AUGMENTIN [Concomitant]
     Active Substance: AMOXICILLIN\CLAVULANATE POTASSIUM
     Dates: start: 20221018, end: 20221022
  21. DEXAMETHASONE [Concomitant]
     Active Substance: DEXAMETHASONE
     Route: 042
     Dates: start: 20220510, end: 20220510
  22. DEXAMETHASONE [Concomitant]
     Active Substance: DEXAMETHASONE
     Route: 042
     Dates: start: 20220426, end: 20220426
  23. DEXAMETHASONE [Concomitant]
     Active Substance: DEXAMETHASONE
     Route: 042
     Dates: start: 20220601, end: 20220601
  24. DEXAMETHASONE [Concomitant]
     Active Substance: DEXAMETHASONE
     Route: 042
     Dates: start: 20220419, end: 20220419
  25. DEXAMETHASONE [Concomitant]
     Active Substance: DEXAMETHASONE
     Route: 042
     Dates: start: 20220802, end: 20220802
  26. DEXAMETHASONE [Concomitant]
     Active Substance: DEXAMETHASONE
     Route: 042
     Dates: start: 20220620, end: 20220620
  27. DEXAMETHASONE [Concomitant]
     Active Substance: DEXAMETHASONE
     Route: 042
     Dates: start: 20220712, end: 20220712
  28. DEXAMETHASONE [Concomitant]
     Active Substance: DEXAMETHASONE
     Route: 042
     Dates: start: 20220830, end: 20220830
  29. CLEMASTINE FUMARATE [Concomitant]
     Active Substance: CLEMASTINE FUMARATE
     Route: 042
     Dates: start: 20220426, end: 20220426
  30. CLEMASTINE FUMARATE [Concomitant]
     Active Substance: CLEMASTINE FUMARATE
     Route: 042
     Dates: start: 20220601, end: 20220601
  31. CLEMASTINE FUMARATE [Concomitant]
     Active Substance: CLEMASTINE FUMARATE
     Route: 042
     Dates: start: 20220510, end: 20220510
  32. CLEMASTINE FUMARATE [Concomitant]
     Active Substance: CLEMASTINE FUMARATE
     Route: 042
     Dates: start: 20220419, end: 20220419
  33. CLEMASTINE FUMARATE [Concomitant]
     Active Substance: CLEMASTINE FUMARATE
     Route: 042
     Dates: start: 20220712, end: 20220712
  34. CLEMASTINE FUMARATE [Concomitant]
     Active Substance: CLEMASTINE FUMARATE
     Route: 042
     Dates: start: 20220802, end: 20220802
  35. CLEMASTINE FUMARATE [Concomitant]
     Active Substance: CLEMASTINE FUMARATE
     Route: 042
     Dates: start: 20220620, end: 20220620
  36. CLEMASTINE FUMARATE [Concomitant]
     Active Substance: CLEMASTINE FUMARATE
     Route: 042
     Dates: start: 20220830, end: 20220830
  37. CLEMASTINE FUMARATE [Concomitant]
     Active Substance: CLEMASTINE FUMARATE
     Dates: start: 20221110, end: 20221110
  38. ELIQUIS [Concomitant]
     Active Substance: APIXABAN
     Indication: Thrombosis
     Dates: start: 20210329, end: 20220801
  39. ELIQUIS [Concomitant]
     Active Substance: APIXABAN
     Dates: start: 20220804
  40. CHOLECALCIFEROL [Concomitant]
     Active Substance: CHOLECALCIFEROL
     Dates: start: 20211012
  41. ACYCLOVIR [Concomitant]
     Active Substance: ACYCLOVIR
     Dates: start: 20220412, end: 20221110
  42. ACYCLOVIR [Concomitant]
     Active Substance: ACYCLOVIR
     Dates: start: 20221125
  43. ALLOPURINOL [Concomitant]
     Active Substance: ALLOPURINOL
     Dates: start: 20220412, end: 20220530
  44. BACTRIM [Concomitant]
     Active Substance: SULFAMETHOXAZOLE\TRIMETHOPRIM
     Dates: start: 20220422, end: 20220530
  45. BACTRIM [Concomitant]
     Active Substance: SULFAMETHOXAZOLE\TRIMETHOPRIM
     Dates: start: 20220919
  46. OMEPRAZOLE [Concomitant]
     Active Substance: OMEPRAZOLE
     Dates: start: 20220525
  47. NESIVINE [Concomitant]
     Indication: Nasopharyngitis
     Dates: start: 20220705, end: 20220711
  48. MOMETASONE [Concomitant]
     Active Substance: MOMETASONE
     Indication: Nasopharyngitis
     Dates: start: 20220705, end: 20220711
  49. MOMETASONE [Concomitant]
     Active Substance: MOMETASONE
     Indication: COVID-19 pneumonia
     Dates: start: 20221108, end: 20221115
  50. INJECTAFER [Concomitant]
     Active Substance: FERRIC CARBOXYMALTOSE
     Indication: Iron deficiency
     Dates: start: 20220802
  51. EVUSHELD [Concomitant]
     Active Substance: CILGAVIMAB\TIXAGEVIMAB
     Dates: start: 20220803, end: 20220803
  52. MICONAZOLE NITRATE [Concomitant]
     Active Substance: MICONAZOLE NITRATE
     Dates: start: 20220919, end: 20221107
  53. PAXLOVID [Concomitant]
     Active Substance: NIRMATRELVIR\RITONAVIR
     Indication: COVID-19
     Dates: start: 20221011, end: 20221015
  54. POVIDONE-IODINE [Concomitant]
     Active Substance: POVIDONE-IODINE
  55. FLUCONAZOLE [Concomitant]
     Active Substance: FLUCONAZOLE
     Dates: start: 20220923, end: 20220923
  56. BECLOMETHASONE DIPROPIONATE\FORMOTEROL FUMARATE [Concomitant]
     Active Substance: BECLOMETHASONE DIPROPIONATE\FORMOTEROL FUMARATE
     Indication: Cough
     Dates: start: 20220923
  57. DIHYDROCODEINE BITARTRATE [Concomitant]
     Active Substance: DIHYDROCODEINE BITARTRATE
     Indication: Cough
     Dates: start: 20220923, end: 20221102
  58. BEFACT FORTE [Concomitant]
     Indication: Hypoaesthesia
     Dates: start: 20221007
  59. GLIQUIDONE [Concomitant]
     Active Substance: GLIQUIDONE
     Dates: start: 20220923, end: 20220923
  60. FENOTEROL HYDROBROMIDE [Concomitant]
     Active Substance: FENOTEROL HYDROBROMIDE
     Indication: COVID-19
     Dates: start: 20221025, end: 20221107
  61. OXYGEN [Concomitant]
     Active Substance: OXYGEN
     Indication: COVID-19 pneumonia
     Dates: start: 20221108, end: 20221114
  62. NOVALGIN (METAMIZOLE SODIUM) [Concomitant]
     Active Substance: METAMIZOLE SODIUM
     Indication: COVID-19 pneumonia
     Dates: start: 20221109, end: 20221111
  63. GANCICLOVIR [Concomitant]
     Active Substance: GANCICLOVIR
     Indication: COVID-19 pneumonia
     Dates: start: 20221110, end: 20221124
  64. SOTROVIMAB [Concomitant]
     Active Substance: SOTROVIMAB
     Indication: COVID-19 pneumonia
     Dates: start: 20221110, end: 20221110
  65. AVELOX [Concomitant]
     Active Substance: MOXIFLOXACIN HYDROCHLORIDE
     Indication: Nasopharyngitis
     Dates: start: 20221102, end: 20221107
  66. IBUPROFEN [Concomitant]
     Active Substance: IBUPROFEN
     Dates: start: 20221101, end: 20221101
  67. POTASSIUM CHLORIDE [Concomitant]
     Active Substance: POTASSIUM CHLORIDE
     Indication: Hypokalaemia
     Dates: start: 20221107, end: 20221111
  68. XYLOMETAZOLINE HYDROCHLORIDE [Concomitant]
     Active Substance: XYLOMETAZOLINE HYDROCHLORIDE
     Indication: Sinusitis
     Dates: start: 20221117, end: 20221122
  69. NASOFREE [Concomitant]
     Indication: Sinusitis
     Dates: start: 20221116
  70. BUDESONIDE [Concomitant]
     Active Substance: BUDESONIDE
     Indication: Sinusitis
     Dates: start: 20221117
  71. PRIVIGEN [Concomitant]
     Active Substance: HUMAN IMMUNOGLOBULIN G
     Indication: Hypogammaglobulinaemia
     Dates: start: 20221110
  72. GLYCOSAMINOGLYCANS [Concomitant]
     Active Substance: GLYCOSAMINOGLYCANS
     Indication: Phlebitis
     Dates: start: 20221122, end: 20221124
  73. MAGNESIUM SULFATE [Concomitant]
     Active Substance: MAGNESIUM SULFATE
     Indication: Hypomagnesaemia
     Dates: start: 20221112, end: 20221115
  74. ALIZAPRIDE HYDROCHLORIDE [Concomitant]
     Active Substance: ALIZAPRIDE HYDROCHLORIDE
     Indication: Nausea
     Dates: start: 20221109, end: 20221109
  75. MEDICA [Concomitant]
     Indication: Oropharyngeal pain
     Dates: start: 20221109, end: 20221109
  76. STEOVIT FORTE [Concomitant]
     Indication: Osteoporosis prophylaxis
     Dates: start: 20220928
  77. RAPIFEN (BELGIUM) [Concomitant]
     Dates: start: 20221109, end: 20221109
  78. MIDAZOLAM [Concomitant]
     Active Substance: MIDAZOLAM
     Dates: start: 20221109, end: 20221109
  79. ENOXAPARIN SODIUM [Concomitant]
     Active Substance: ENOXAPARIN SODIUM
     Dates: start: 20221111, end: 20221124
  80. SOLU-MEDROL [Concomitant]
     Active Substance: METHYLPREDNISOLONE SODIUM SUCCINATE
     Dates: start: 20221112, end: 20221116
  81. TOBREX [Concomitant]
     Active Substance: TOBRAMYCIN
     Indication: Neuromyelitis optica spectrum disorder
     Dates: start: 20230307, end: 20230311
  82. DURATEARS (BELGIUM) [Concomitant]
     Indication: Neuromyelitis optica spectrum disorder
     Dates: start: 20230307, end: 20230311
  83. PREDNISOLONE [Concomitant]
     Active Substance: PREDNISOLONE
     Dates: start: 20230311

REACTIONS (1)
  - Colitis [Not Recovered/Not Resolved]

NARRATIVE: CASE EVENT DATE: 20220517
